FAERS Safety Report 20760522 (Version 1)
Quarter: 2022Q2

REPORT INFORMATION
  Report Type: Spontaneous
  Country: KR (occurrence: KR)
  Receive Date: 20220428
  Receipt Date: 20220428
  Transmission Date: 20220721
  Serious: Yes (Other)
  Sender: FDA-Public Use
  Company Number: KR-UCBSA-2022022522

PATIENT
  Age: 66 Year
  Sex: Male

DRUGS (5)
  1. KEPPRA [Suspect]
     Active Substance: LEVETIRACETAM
     Indication: Partial seizures
     Dosage: 1500MG/DAY
  2. KEPPRA [Suspect]
     Active Substance: LEVETIRACETAM
     Indication: Status epilepticus
     Dosage: 3000MG/DAY
  3. KEPPRA [Suspect]
     Active Substance: LEVETIRACETAM
     Dosage: 1500MG/DAY
  4. KEPPRA [Suspect]
     Active Substance: LEVETIRACETAM
     Dosage: 500MG/DAY
  5. METHYLPREDNISOLONE [Concomitant]
     Active Substance: METHYLPREDNISOLONE
     Indication: Encephalitis autoimmune
     Dosage: 250MG/DAY

REACTIONS (4)
  - Generalised tonic-clonic seizure [Not Recovered/Not Resolved]
  - Hallucination [Unknown]
  - Status epilepticus [Recovering/Resolving]
  - Product use in unapproved indication [Unknown]
